FAERS Safety Report 21238737 (Version 3)
Quarter: 2022Q3

REPORT INFORMATION
  Report Type: Spontaneous
  Country: US (occurrence: US)
  Receive Date: 20220822
  Receipt Date: 20220921
  Transmission Date: 20221027
  Serious: Yes (Other)
  Sender: FDA-Public Use
  Company Number: US-BAYER-2022A114374

PATIENT
  Age: 25 Year
  Sex: Male

DRUGS (4)
  1. KOVALTRY [Suspect]
     Active Substance: ANTIHEMOPHILIC FACTOR, HUMAN RECOMBINANT
     Dosage: 3500 IU, UNK (+/- 10%)
  2. KOVALTRY [Suspect]
     Active Substance: ANTIHEMOPHILIC FACTOR, HUMAN RECOMBINANT
     Dosage: 1 DF, ONCE FOR FALL/BLEED
     Dates: start: 20220813, end: 20220813
  3. KOVALTRY [Suspect]
     Active Substance: ANTIHEMOPHILIC FACTOR, HUMAN RECOMBINANT
     Dosage: 1 DF, ONCE FOR FALL/BLEED
     Dates: start: 20220814, end: 20220814
  4. KOVALTRY [Suspect]
     Active Substance: ANTIHEMOPHILIC FACTOR, HUMAN RECOMBINANT
     Dosage: 3500 U, 2 DOSES FOR PREVENTIVE TREAMENT AFTER FALL FROM SCOOTER
     Route: 042
     Dates: start: 202209

REACTIONS (3)
  - Fall [None]
  - Traumatic haemorrhage [None]
  - Fall [None]

NARRATIVE: CASE EVENT DATE: 20220813
